FAERS Safety Report 9199757 (Version 5)
Quarter: 2014Q2

REPORT INFORMATION
  Report Type: Spontaneous
  Country: PL (occurrence: PL)
  Receive Date: 20130329
  Receipt Date: 20140505
  Transmission Date: 20141212
  Serious: Yes (Hospitalization)
  Sender: FDA-Public Use
  Company Number: PL-ASTRAZENECA-2012SE90972

PATIENT
  Age: 72 Year
  Sex: Male
  Weight: 75 kg

DRUGS (30)
  1. MEDI8968 [Suspect]
     Indication: CHRONIC OBSTRUCTIVE PULMONARY DISEASE
     Route: 042
  2. MEDI8968 [Suspect]
     Indication: CHRONIC OBSTRUCTIVE PULMONARY DISEASE
     Route: 058
     Dates: start: 20120827
  3. PULMICORT [Suspect]
     Indication: CHRONIC OBSTRUCTIVE PULMONARY DISEASE
     Route: 055
     Dates: start: 20121025
  4. SYMBICORT [Suspect]
     Indication: CHRONIC OBSTRUCTIVE PULMONARY DISEASE
     Dosage: 160/4.5 MCG, TWO DOSES TWO TIMES DAILY
     Route: 055
     Dates: start: 20120813
  5. METYPRED [Suspect]
     Indication: CHRONIC OBSTRUCTIVE PULMONARY DISEASE
     Route: 048
     Dates: start: 20121017, end: 20121030
  6. METYPRED [Suspect]
     Indication: CHRONIC OBSTRUCTIVE PULMONARY DISEASE
     Route: 048
     Dates: start: 20121031, end: 20121211
  7. MIFLONIDE [Suspect]
     Indication: CHRONIC OBSTRUCTIVE PULMONARY DISEASE
     Route: 055
     Dates: start: 20120420, end: 20120801
  8. CIPRONEX [Suspect]
     Dates: start: 20121025, end: 20121030
  9. AUGMENTIN [Suspect]
     Dates: start: 20121025, end: 20121030
  10. DIUVER [Concomitant]
     Indication: HYPERTENSION
     Route: 048
     Dates: start: 201201
  11. DIUVER [Concomitant]
     Indication: MYOCARDIAL ISCHAEMIA
     Route: 048
     Dates: start: 201201
  12. DIUVER [Concomitant]
     Indication: HYPERTENSION
     Route: 048
     Dates: start: 20121025
  13. DIUVER [Concomitant]
     Indication: MYOCARDIAL ISCHAEMIA
     Route: 048
     Dates: start: 20121025
  14. POLPRIL [Concomitant]
     Indication: HYPERTENSION
     Route: 048
     Dates: start: 201201
  15. POLPRIL [Concomitant]
     Indication: MYOCARDIAL ISCHAEMIA
     Route: 048
     Dates: start: 201201
  16. POLPRIL [Concomitant]
     Indication: HYPERTENSION
     Route: 048
     Dates: start: 20121017
  17. POLPRIL [Concomitant]
     Indication: MYOCARDIAL ISCHAEMIA
     Route: 048
     Dates: start: 20121017
  18. POLOCARD [Concomitant]
     Indication: MYOCARDIAL ISCHAEMIA
     Route: 048
     Dates: start: 2010
  19. EFFOX [Concomitant]
     Indication: CORONARY ARTERY DISEASE
     Route: 048
     Dates: start: 2010
  20. TULIP [Concomitant]
     Indication: HYPERCHOLESTEROLAEMIA
     Route: 048
     Dates: start: 20120107
  21. CALPEROZ [Concomitant]
     Indication: OSTEOPOROSIS
     Route: 048
     Dates: start: 20120107
  22. ATOBAN [Concomitant]
     Indication: INSOMNIA
     Route: 048
     Dates: start: 20121025
  23. NOLPAZA [Concomitant]
     Indication: ABDOMINAL PAIN UPPER
     Route: 048
     Dates: start: 20121106
  24. METOCLOPRAMIDE [Concomitant]
     Indication: NAUSEA
     Route: 048
     Dates: start: 20121106
  25. VENTOLIN [Concomitant]
     Indication: CHRONIC OBSTRUCTIVE PULMONARY DISEASE
     Route: 055
     Dates: start: 20111210
  26. ACC-500 [Concomitant]
     Indication: CHRONIC OBSTRUCTIVE PULMONARY DISEASE
     Route: 048
     Dates: start: 20120720
  27. THEOSPIREX [Concomitant]
     Indication: CHRONIC OBSTRUCTIVE PULMONARY DISEASE
     Route: 048
     Dates: start: 20121017
  28. OXODIL [Concomitant]
     Indication: CHRONIC OBSTRUCTIVE PULMONARY DISEASE
     Route: 055
     Dates: start: 20121026
  29. SALAMOL [Concomitant]
     Indication: CHRONIC OBSTRUCTIVE PULMONARY DISEASE
     Route: 055
     Dates: start: 20121025
  30. ATROVENT [Concomitant]
     Indication: CHRONIC OBSTRUCTIVE PULMONARY DISEASE
     Route: 055
     Dates: start: 20121025

REACTIONS (1)
  - Fungal oesophagitis [Recovered/Resolved]
